FAERS Safety Report 13996908 (Version 1)
Quarter: 2017Q3

REPORT INFORMATION
  Report Type: Spontaneous
  Country: DE (occurrence: DE)
  Receive Date: 20170921
  Receipt Date: 20170921
  Transmission Date: 20171128
  Serious: Yes (Other)
  Sender: FDA-Public Use
  Company Number: DE-PFIZER INC-2017404581

PATIENT
  Sex: Female

DRUGS (1)
  1. ARTHROTEC [Suspect]
     Active Substance: DICLOFENAC SODIUM\MISOPROSTOL
     Dosage: 75MG / 2UG (REIMPORT FROM KOHLPHARMA)

REACTIONS (3)
  - Dizziness [Unknown]
  - Fall [Unknown]
  - Upper limb fracture [Unknown]
